FAERS Safety Report 8478197-6 (Version None)
Quarter: 2012Q2

REPORT INFORMATION
  Report Type: 
  Country: None (occurrence: None)
  Receive Date: 20120629
  Receipt Date: 20120619
  Transmission Date: 20120825
  Serious: Yes (Hospitalization, Other)
  Sender: FDA-Public Use
  Company Number: US-ELI_LILLY_AND_COMPANY-US201104005508

PATIENT
  Sex: Female

DRUGS (4)
  1. FORTEO [Suspect]
     Dosage: 20 UG, QD
     Route: 065
  2. FORTEO [Suspect]
     Dosage: UNK
     Route: 065
  3. FORTEO [Suspect]
     Dosage: 20 UG, QD
  4. FORTEO [Suspect]
     Indication: OSTEOPOROSIS
     Dosage: 20 UNK, QD
     Route: 065
     Dates: start: 20110311

REACTIONS (7)
  - PNEUMONIA [None]
  - HEADACHE [None]
  - STRESS CARDIOMYOPATHY [None]
  - MASS [None]
  - CARDIAC FAILURE CONGESTIVE [None]
  - VISION BLURRED [None]
  - HYPERTENSIVE CRISIS [None]
